FAERS Safety Report 10365108 (Version 1)
Quarter: 2014Q1

REPORT INFORMATION
  Report Type: Spontaneous
  Country: US (occurrence: None)
  Receive Date: 20140306
  Receipt Date: 20140306
  Transmission Date: 20141002
  Serious: Yes (Hospitalization)
  Sender: FDA-Public Use
  Company Number: 163-21880-13106478

PATIENT
  Age: 62 Year
  Sex: Female

DRUGS (4)
  1. REVLIMID [Suspect]
     Indication: PLASMA CELL MYELOMA
     Route: 048
     Dates: start: 20061030
  2. HYDROCODONE-ACETAMINOPHEN(VICODIN)(UNKNOWN) [Concomitant]
  3. LISINOPRIL(LISINOPRIL)(UNKNOWN)? [Concomitant]
  4. SERTRALINE HCL(SERTRALINE HYDROCHLORIDE)(UNKNOWN) [Concomitant]

REACTIONS (1)
  - Cervical vertebral fracture [None]
